FAERS Safety Report 14008397 (Version 1)
Quarter: 2017Q3

REPORT INFORMATION
  Report Type: Spontaneous
  Country: US (occurrence: US)
  Receive Date: 20170925
  Receipt Date: 20170925
  Transmission Date: 20171128
  Serious: Yes (Life-Threatening, Disabling)
  Sender: FDA-Public Use
  Company Number: None

PATIENT
  Age: 40 Year
  Sex: Female
  Weight: 45 kg

DRUGS (11)
  1. LITHIUM. [Suspect]
     Active Substance: LITHIUM
     Indication: BIPOLAR DISORDER
     Route: 048
     Dates: start: 20130901, end: 20160812
  2. CHEMICAL FROM STRESS TEST [Suspect]
     Active Substance: UNSPECIFIED INGREDIENT
     Indication: CARDIAC STRESS TEST
     Route: 042
  3. CLONAZEPAM. [Concomitant]
     Active Substance: CLONAZEPAM
  4. NAPROXEN. [Concomitant]
     Active Substance: NAPROXEN
  5. ZANAFLEX [Concomitant]
     Active Substance: TIZANIDINE HYDROCHLORIDE
  6. VYVANSE [Concomitant]
     Active Substance: LISDEXAMFETAMINE DIMESYLATE
  7. CHERTUSSIN AC [Concomitant]
  8. PREDNISONE. [Concomitant]
     Active Substance: PREDNISONE
  9. LATUDA [Concomitant]
     Active Substance: LURASIDONE HYDROCHLORIDE
  10. MARIJUANA [Concomitant]
     Active Substance: CANNABIS SATIVA SUBSP. INDICA TOP
  11. ODANSETRON [Concomitant]
     Active Substance: ONDANSETRON

REACTIONS (11)
  - Retching [None]
  - Vomiting [None]
  - Foaming at mouth [None]
  - Drug interaction [None]
  - Leukocytosis [None]
  - Contusion [None]
  - Urinary retention [None]
  - Renal failure [None]
  - Sepsis [None]
  - Nausea [None]
  - Pneumonia streptococcal [None]

NARRATIVE: CASE EVENT DATE: 20160505
